FAERS Safety Report 8155209-0 (Version None)
Quarter: 2012Q1

REPORT INFORMATION
  Report Type: 
  Country: None (occurrence: None)
  Receive Date: 20120222
  Receipt Date: 20120207
  Transmission Date: 20120608
  Serious: Yes (Other)
  Sender: FDA-Public Use
  Company Number: US-JNJCP-30000090069

PATIENT
  Sex: Female
  Weight: 64 kg

DRUGS (4)
  1. NONE [Concomitant]
  2. NTG SKIN ID (38)TREATMENT PADS USA NTSITPUS [Suspect]
     Indication: ACNE
     Dosage: AS DIRECTED
     Route: 061
  3. NTG SKIN ID FOAM CLEANSER USA NTSIFCUS [Suspect]
     Indication: ACNE
     Dosage: AS DIRECTED
     Route: 061
  4. NTG SKIN ID ANTI ACNE TREATMENT USA NTSIAAUS [Suspect]
     Indication: ACNE
     Dosage: AS DIRECTED
     Route: 061

REACTIONS (3)
  - DIZZINESS [None]
  - SYNCOPE [None]
  - NAUSEA [None]
